FAERS Safety Report 5946898-7 (Version None)
Quarter: 2008Q4

REPORT INFORMATION
  Report Type: 
  Country: None (occurrence: None)
  Receive Date: 20081110
  Receipt Date: 20081103
  Transmission Date: 20090506
  Serious: Yes (Other)
  Sender: FDA-Public Use
  Company Number: US-ASTRAZENECA-2008UW24619

PATIENT
  Age: 19 Year
  Sex: Male
  Weight: 81.6 kg

DRUGS (5)
  1. SEROQUEL [Suspect]
     Indication: BIPOLAR DISORDER
     Dosage: LOWER DOSE
     Route: 048
     Dates: start: 20010101
  2. SEROQUEL [Suspect]
     Dosage: 1000 MG
     Route: 048
     Dates: start: 20071101, end: 20081101
  3. LITHIUM [Concomitant]
  4. SYNTHROID [Concomitant]
  5. CHANTIX [Concomitant]

REACTIONS (1)
  - PLATELET COUNT DECREASED [None]
